FAERS Safety Report 10167598 (Version 1)
Quarter: 2014Q2

REPORT INFORMATION
  Report Type: Spontaneous
  Country: US (occurrence: US)
  Receive Date: 20140512
  Receipt Date: 20140512
  Transmission Date: 20141212
  Serious: No
  Sender: FDA-Public Use
  Company Number: US-PFIZER INC-2014125507

PATIENT
  Age: 30 Year
  Sex: Female

DRUGS (2)
  1. ADVIL PM [Suspect]
     Indication: ARTHRALGIA
     Dosage: UNK
  2. ADVIL PM [Suspect]
     Indication: INSOMNIA

REACTIONS (1)
  - Drug ineffective [Unknown]
